FAERS Safety Report 10419826 (Version 1)
Quarter: 2014Q3

REPORT INFORMATION
  Report Type: Spontaneous
  Country: TR (occurrence: TR)
  Receive Date: 20140829
  Receipt Date: 20140829
  Transmission Date: 20150326
  Serious: Yes (Hospitalization, Other)
  Sender: FDA-Public Use
  Company Number: PHHY2014TR107455

PATIENT
  Age: 14 Year
  Sex: Female

DRUGS (1)
  1. CARBAMAZEPINE. [Suspect]
     Active Substance: CARBAMAZEPINE
     Indication: EPILEPSY

REACTIONS (11)
  - Glycosuria [Unknown]
  - Lung consolidation [Unknown]
  - Pyrexia [Unknown]
  - Pleural effusion [Unknown]
  - Type 2 diabetes mellitus [Unknown]
  - Hyperglycaemia [Unknown]
  - Drug reaction with eosinophilia and systemic symptoms [Unknown]
  - Rash [Unknown]
  - Rash maculo-papular [Unknown]
  - Lung disorder [Unknown]
  - Rales [Unknown]
